FAERS Safety Report 7647920-2 (Version None)
Quarter: 2011Q3

REPORT INFORMATION
  Report Type: 
  Country: None (occurrence: None)
  Receive Date: 20110726
  Receipt Date: 20110712
  Transmission Date: 20111222
  Serious: Yes (Death, Other)
  Sender: FDA-Public Use
  Company Number: MPS1-1000530

PATIENT
  Age: 13 Year
  Sex: Female

DRUGS (5)
  1. MIDAZOLAM HCL [Concomitant]
  2. CLONAZEPAM [Concomitant]
  3. OXYCODONE HCL [Concomitant]
  4. ALDURAZYME [Suspect]
     Indication: MUCOPOLYSACCHARIDOSIS
     Dosage: 100 U/KG, INTRAVENOUS
     Route: 042
     Dates: start: 20040427, end: 20100709
  5. TRAMADOL HYDROHLORIDE [Concomitant]

REACTIONS (3)
  - DISEASE PROGRESSION [None]
  - MUCOPOLYSACCHARIDOSIS I [None]
  - CARDIOPULMONARY FAILURE [None]
